FAERS Safety Report 4307131-5 (Version None)
Quarter: 2004Q1

REPORT INFORMATION
  Report Type: 
  Country: None (occurrence: None)
  Receive Date: 20040225
  Receipt Date: 20000531
  Transmission Date: 20041129
  Serious: Yes (Hospitalization)
  Sender: FDA-Public Use
  Company Number: KII-2000-0007484

PATIENT
  Age: 72 Year
  Sex: Female

DRUGS (1)
  1. OXYCONTIN [Suspect]
     Indication: PAIN
     Dosage: SEE TEXT

REACTIONS (4)
  - DRUG DETOXIFICATION [None]
  - FALL [None]
  - INADEQUATE ANALGESIA [None]
  - MEDICATION ERROR [None]
